FAERS Safety Report 7150794-X (Version None)
Quarter: 2010Q4

REPORT INFORMATION
  Report Type: 
  Country: None (occurrence: None)
  Receive Date: 20101126
  Receipt Date: 20101110
  Transmission Date: 20110411
  Serious: Yes (Other)
  Sender: FDA-Public Use
  Company Number: 020926

PATIENT
  Sex: Female
  Weight: 69.4 kg

DRUGS (5)
  1. CIMZIA [Suspect]
     Indication: CROHN'S DISEASE
     Dosage: SUBCUTANEOUS
     Route: 058
     Dates: start: 20100815
  2. ASACOL [Concomitant]
  3. PRILOSEC [Concomitant]
  4. CHOLESTYRAMINE [Concomitant]
  5. IRON [Concomitant]

REACTIONS (12)
  - CONVULSION [None]
  - COUGH [None]
  - DIZZINESS [None]
  - DYSPEPSIA [None]
  - HEADACHE [None]
  - INFLUENZA [None]
  - JOINT INJURY [None]
  - LOSS OF CONSCIOUSNESS [None]
  - MALAISE [None]
  - NAUSEA [None]
  - OROPHARYNGEAL PAIN [None]
  - VOMITING [None]
